FAERS Safety Report 20212494 (Version 1)
Quarter: 2021Q4

REPORT INFORMATION
  Report Type: Spontaneous
  Country: GR (occurrence: GR)
  Receive Date: 20211221
  Receipt Date: 20211221
  Transmission Date: 20220304
  Serious: No
  Sender: FDA-Public Use
  Company Number: GR-PFIZER INC-2021384248

PATIENT
  Age: 13 Year
  Sex: Male

DRUGS (2)
  1. GENOTROPIN [Suspect]
     Active Substance: SOMATROPIN
     Dosage: 7 MG/7 DAYS/ 12.0 MG PEN
     Dates: start: 20210220
  2. GENOTROPIN [Suspect]
     Active Substance: SOMATROPIN
     Dosage: 7 MG/7 DAYS/ 12.0 MG PEN
     Dates: start: 20210220

REACTIONS (2)
  - Drug dose omission by device [Unknown]
  - Device issue [Unknown]

NARRATIVE: CASE EVENT DATE: 20210101
